FAERS Safety Report 19591408 (Version 3)
Quarter: 2021Q3

REPORT INFORMATION
  Report Type: Other
  Country: US (occurrence: US)
  Receive Date: 20210721
  Receipt Date: 20210915
  Transmission Date: 20211014
  Serious: Yes (Hospitalization)
  Sender: FDA-Public Use
  Company Number: US-ROCHE-2872698

PATIENT
  Sex: Female

DRUGS (1)
  1. ESBRIET [Suspect]
     Active Substance: PIRFENIDONE
     Indication: IDIOPATHIC PULMONARY FIBROSIS
     Dosage: 3 TABLETS BY MOUTH 3 TIMES A DAY
     Route: 048

REACTIONS (6)
  - Feeling abnormal [Unknown]
  - Weight decreased [Unknown]
  - Nausea [Unknown]
  - COVID-19 [Unknown]
  - Asthenia [Unknown]
  - Dyspnoea [Unknown]
